FAERS Safety Report 16462438 (Version 1)
Quarter: 2019Q2

REPORT INFORMATION
  Report Type: Spontaneous
  Country: MY (occurrence: MY)
  Receive Date: 20190621
  Receipt Date: 20190621
  Transmission Date: 20190711
  Serious: Yes (Other)
  Sender: FDA-Public Use
  Company Number: MY-PFIZER INC-2019263284

PATIENT
  Age: 53 Year
  Sex: Female

DRUGS (1)
  1. DILANTIN [Suspect]
     Active Substance: PHENYTOIN
     Indication: POST STROKE SEIZURE
     Dosage: 300 MG, DAILY
     Route: 048

REACTIONS (1)
  - Erythema multiforme [Recovering/Resolving]
